FAERS Safety Report 13737523 (Version 3)
Quarter: 2017Q3

REPORT INFORMATION
  Report Type: Spontaneous
  Country: GB (occurrence: GB)
  Receive Date: 20170710
  Receipt Date: 20170901
  Transmission Date: 20171127
  Serious: Yes (Other)
  Sender: FDA-Public Use
  Company Number: GB-SA-2017SA121334

PATIENT
  Age: 88 Year
  Sex: Female

DRUGS (8)
  1. CLOPIDOGREL BISULFATE. [Suspect]
     Active Substance: CLOPIDOGREL BISULFATE
     Dosage: DOSAGE FORM: UNSPECIFIED
     Route: 048
  2. PHENOXYMETHYLPENICILLIN [Suspect]
     Active Substance: PENICILLIN V
     Dosage: DOSAGE FORM: UNSPECIFIED
     Route: 065
  3. SOLIRIS [Suspect]
     Active Substance: ECULIZUMAB
     Route: 065
  4. EPREX [Suspect]
     Active Substance: ERYTHROPOIETIN
     Indication: ANAEMIA
     Dosage: 1000 IU/0.5 ML DOSE:120 UNIT(S)
     Route: 065
  5. CETIRIZINE HYDROCHLORIDE. [Suspect]
     Active Substance: CETIRIZINE HYDROCHLORIDE
     Dosage: DOSAGE FORM: UNSPECIFIED
     Route: 065
  6. VENTOLIN [Suspect]
     Active Substance: ALBUTEROL SULFATE
     Dosage: DOSAGE FORM: UNSPECIFIED
     Route: 065
  7. AMLODIPINE BESILATE [Suspect]
     Active Substance: AMLODIPINE BESYLATE
     Dosage: DOSAGE FORM: UNSPECIFIED
     Route: 065
  8. TIOTROPIUM BROMIDE [Suspect]
     Active Substance: TIOTROPIUM BROMIDE
     Dosage: DOSAGE FORM: UNSPECIFIED
     Route: 065

REACTIONS (4)
  - Dysphagia [Not Recovered/Not Resolved]
  - Fatigue [Not Recovered/Not Resolved]
  - Dyspnoea [Unknown]
  - Chronic obstructive pulmonary disease [Unknown]
